FAERS Safety Report 21934520 (Version 3)
Quarter: 2023Q1

REPORT INFORMATION
  Report Type: Spontaneous
  Country: US (occurrence: US)
  Receive Date: 20230201
  Receipt Date: 20230228
  Transmission Date: 20230418
  Serious: No
  Sender: FDA-Public Use
  Company Number: US-PFIZER INC-202300038447

PATIENT
  Age: 44 Year
  Sex: Female

DRUGS (2)
  1. SOMAVERT [Suspect]
     Active Substance: PEGVISOMANT
     Dosage: 20 MG (EVERY OTHER DAY)
  2. SOMAVERT [Suspect]
     Active Substance: PEGVISOMANT
     Dosage: 20 MG (UNDER THE SKIN THREE DAYS A WEEK (MUST BE USED WITHIN 6 HOURS AFTER RECONSTITUTION))
     Dates: start: 202211

REACTIONS (3)
  - Headache [Unknown]
  - Pain [Not Recovered/Not Resolved]
  - Off label use [Unknown]
